FAERS Safety Report 9052059 (Version 3)
Quarter: 2013Q4

REPORT INFORMATION
  Report Type: Spontaneous
  Country: CA (occurrence: CA)
  Receive Date: 20130207
  Receipt Date: 20131004
  Transmission Date: 20140711
  Serious: Yes (Hospitalization)
  Sender: FDA-Public Use
  Company Number: CA-CELGENEUS-028-21880-12081417

PATIENT
  Sex: Male

DRUGS (25)
  1. REVLIMID [Suspect]
     Indication: PLASMA CELL MYELOMA
     Route: 048
     Dates: start: 20120723
  2. ELOTUZUMAB [Suspect]
     Indication: PLASMA CELL MYELOMA
     Route: 041
     Dates: start: 20120723
  3. DEXAMETHASONE [Suspect]
     Indication: PLASMA CELL MYELOMA
     Route: 048
     Dates: start: 20120723
  4. PANTOPRAZOLE [Concomitant]
     Indication: PRODUCT USED FOR UNKNOWN INDICATION
     Route: 065
     Dates: start: 20120723
  5. ALLOPURINOL [Concomitant]
     Indication: PRODUCT USED FOR UNKNOWN INDICATION
     Route: 065
     Dates: start: 20120723
  6. ASPIRIN [Concomitant]
     Indication: PRODUCT USED FOR UNKNOWN INDICATION
     Route: 065
     Dates: start: 20120723
  7. TAMSULOSIN [Concomitant]
     Indication: PRODUCT USED FOR UNKNOWN INDICATION
     Route: 065
     Dates: start: 2007
  8. SYMBICORT [Concomitant]
     Indication: PRODUCT USED FOR UNKNOWN INDICATION
     Route: 065
     Dates: start: 1992
  9. SYMBICORT [Concomitant]
     Route: 065
     Dates: start: 20130129
  10. DOCUSATE SODIUM [Concomitant]
     Indication: PRODUCT USED FOR UNKNOWN INDICATION
     Route: 065
     Dates: start: 2012
  11. OXYCODONE/ACETAMINOPHEN [Concomitant]
     Indication: PRODUCT USED FOR UNKNOWN INDICATION
     Route: 065
     Dates: start: 20120515
  12. WARFARIN [Concomitant]
     Indication: ADVERSE EVENT
     Route: 065
     Dates: start: 20121005, end: 20121009
  13. WARFARIN [Concomitant]
     Route: 065
     Dates: start: 20121010, end: 20121011
  14. WARFARIN [Concomitant]
     Route: 065
     Dates: start: 20121011, end: 20121012
  15. WARFARIN [Concomitant]
     Route: 065
     Dates: start: 20121128, end: 20121210
  16. PANTOPRAZOLE MAGNESIUM [Concomitant]
     Indication: PRODUCT USED FOR UNKNOWN INDICATION
     Route: 065
     Dates: start: 20120708, end: 20120807
  17. METFORMIN [Concomitant]
     Indication: PRODUCT USED FOR UNKNOWN INDICATION
     Route: 065
     Dates: start: 20120708, end: 20120807
  18. ONDANSETRON [Concomitant]
     Indication: ADVERSE EVENT
     Route: 065
     Dates: start: 20120904, end: 20120904
  19. RIVAROXABAN [Concomitant]
     Indication: ADVERSE EVENT
     Route: 065
     Dates: start: 20120907
  20. DALTEPARIN [Concomitant]
     Indication: ADVERSE EVENT
     Route: 065
     Dates: start: 20120815, end: 20120907
  21. FRAGMIN [Concomitant]
     Indication: PRODUCT USED FOR UNKNOWN INDICATION
     Route: 065
     Dates: start: 20121211
  22. PERCOCET [Concomitant]
     Indication: ADVERSE EVENT
     Route: 065
     Dates: start: 20130402
  23. PAMIDRONATE [Concomitant]
     Indication: PRODUCT USED FOR UNKNOWN INDICATION
     Route: 065
     Dates: start: 20130110
  24. CLINDAMYCIN [Concomitant]
     Indication: ADVERSE EVENT
     Dosage: 1200 MILLIGRAM
     Route: 048
     Dates: start: 20130603, end: 20130613
  25. MOMETASONE [Concomitant]
     Indication: ADVERSE EVENT
     Route: 045
     Dates: start: 20130911

REACTIONS (1)
  - Anal fistula [Recovered/Resolved with Sequelae]
